FAERS Safety Report 8058883 (Version 3)
Quarter: 2013Q3

REPORT INFORMATION
  Report Type: Spontaneous
  Country: US (occurrence: US)
  Receive Date: 20110728
  Receipt Date: 20130823
  Transmission Date: 20140515
  Serious: Yes (Death, Other)
  Sender: FDA-Public Use
  Company Number: US-ROCHE-791200

PATIENT
  Age: 20 Year
  Sex: Male
  Weight: 49.94 kg

DRUGS (3)
  1. ACCUTANE [Suspect]
     Indication: ACNE
     Route: 048
     Dates: start: 1986, end: 1992
  2. ACCUTANE [Suspect]
     Indication: ACNE CONGLOBATA
     Route: 065
     Dates: start: 1995, end: 1996
  3. ACCUTANE [Suspect]
     Route: 048
     Dates: start: 20010827, end: 200111

REACTIONS (12)
  - Colitis ulcerative [Fatal]
  - Colon cancer [Fatal]
  - Inflammatory bowel disease [Unknown]
  - Emotional distress [Not Recovered/Not Resolved]
  - Intestinal obstruction [Not Recovered/Not Resolved]
  - Large intestine polyp [Unknown]
  - Arthralgia [Unknown]
  - Lip dry [Unknown]
  - Chapped lips [Unknown]
  - Nasal dryness [Unknown]
  - Dry skin [Unknown]
  - Dry eye [Unknown]
